FAERS Safety Report 8520281-2 (Version None)
Quarter: 2012Q3

REPORT INFORMATION
  Report Type: 
  Country: None (occurrence: None)
  Receive Date: 20120713
  Receipt Date: 20120713
  Transmission Date: 20120928
  Serious: Yes (Hospitalization)
  Sender: FDA-Public Use
  Company Number: None

PATIENT
  Age: 87 Year
  Sex: Male
  Weight: 89.5 kg

DRUGS (2)
  1. FUROSEMIDE [Suspect]
     Dosage: 20 MG EVERY DAY PO
     Route: 048
     Dates: start: 20120112, end: 20120127
  2. METOPROLOL SUCCINATE [Suspect]
     Dosage: 150 MG EVERY PO
     Route: 048
     Dates: start: 20120112, end: 20120127

REACTIONS (2)
  - CONFUSIONAL STATE [None]
  - ORTHOSTATIC HYPOTENSION [None]
